FAERS Safety Report 7083248-X (Version None)
Quarter: 2010Q4

REPORT INFORMATION
  Report Type: 
  Country: None (occurrence: None)
  Receive Date: 20101104
  Receipt Date: 20101029
  Transmission Date: 20110411
  Serious: Yes (Hospitalization)
  Sender: FDA-Public Use
  Company Number: JP-BAYER-201014012BYL

PATIENT
  Age: 63 Year
  Sex: Male
  Weight: 71 kg

DRUGS (7)
  1. NEXAVAR [Suspect]
     Indication: HEPATIC NEOPLASM MALIGNANT
     Dosage: TOTAL DAILY DOSE: 800 MG  UNIT DOSE: 200 MG
     Route: 048
     Dates: start: 20100729, end: 20100825
  2. NEXAVAR [Suspect]
     Dosage: UNIT DOSE: 200 MG
     Route: 048
     Dates: start: 20100826, end: 20100930
  3. URSO 250 [Concomitant]
     Route: 048
     Dates: start: 20090611, end: 20100930
  4. SUNRYTHM [Concomitant]
     Route: 048
     Dates: start: 20090611, end: 20100930
  5. PARIET [Concomitant]
     Route: 048
     Dates: start: 20090611, end: 20100930
  6. PREDNISOLONE [Concomitant]
     Route: 048
     Dates: start: 20090611, end: 20100930
  7. AZELASTINE HCL [Concomitant]
     Route: 048
     Dates: start: 20090611, end: 20100930

REACTIONS (3)
  - ASCITES [None]
  - PALMAR-PLANTAR ERYTHRODYSAESTHESIA SYNDROME [None]
  - WEIGHT DECREASED [None]
